FAERS Safety Report 5957153-3 (Version None)
Quarter: 2008Q4

REPORT INFORMATION
  Report Type: 
  Country: None (occurrence: None)
  Receive Date: 20081117
  Receipt Date: 20081117
  Transmission Date: 20090506
  Serious: Yes (Other)
  Sender: FDA-Public Use
  Company Number: None

PATIENT
  Age: 47 Year
  Sex: Female
  Weight: 79.3795 kg

DRUGS (1)
  1. AMRIX [Suspect]
     Indication: MUSCLE SPASMS
     Dosage: 1 TABLET BEFORE BED PO
     Route: 048
     Dates: start: 20081103, end: 20081113

REACTIONS (2)
  - MUSCLE SPASMS [None]
  - PAIN [None]
